FAERS Safety Report 9729131 (Version 1)
Quarter: 2013Q4

REPORT INFORMATION
  Report Type: Spontaneous
  Country: US (occurrence: US)
  Receive Date: 20131204
  Receipt Date: 20131204
  Transmission Date: 20140711
  Serious: No
  Sender: FDA-Public Use
  Company Number: US-009507513-1311USA009124

PATIENT
  Sex: Female
  Weight: 56.69 kg

DRUGS (2)
  1. IMPLANON [Suspect]
     Indication: CONTRACEPTION
     Dosage: UNK
     Route: 059
  2. IMPLANON [Suspect]
     Dosage: ONE ROD/THREE YEARS
     Dates: start: 20130422

REACTIONS (11)
  - Vulvovaginal dryness [Unknown]
  - Vulvovaginal dryness [Not Recovered/Not Resolved]
  - Device deployment issue [Unknown]
  - Acne [Not Recovered/Not Resolved]
  - Weight increased [Not Recovered/Not Resolved]
  - Vulvovaginal mycotic infection [Not Recovered/Not Resolved]
  - Implant site scar [Unknown]
  - Acne [Unknown]
  - Weight increased [Unknown]
  - Vulvovaginal mycotic infection [Unknown]
  - Incorrect route of drug administration [Unknown]
